FAERS Safety Report 4642623-0 (Version None)
Quarter: 2005Q2

REPORT INFORMATION
  Report Type: 
  Country: None (occurrence: None)
  Receive Date: 20050420
  Receipt Date: 20050407
  Transmission Date: 20051028
  Serious: Yes (Hospitalization, Other)
  Sender: FDA-Public Use
  Company Number: HQWYE882108APR05

PATIENT
  Age: 14 Month
  Sex: Female

DRUGS (2)
  1. CHILDREN'S ADVIL [Suspect]
     Indication: PYREXIA
     Dosage: ORAL
     Route: 048
     Dates: start: 20050303, end: 20050305
  2. AMOXICILLIN [Suspect]
     Indication: RHINITIS
     Dates: start: 20050220, end: 20050301

REACTIONS (2)
  - OEDEMA PERIPHERAL [None]
  - OLIGURIA [None]
